FAERS Safety Report 5999145-4 (Version None)
Quarter: 2008Q4

REPORT INFORMATION
  Report Type: 
  Country: None (occurrence: None)
  Receive Date: 20081211
  Receipt Date: 20081126
  Transmission Date: 20090506
  Serious: Yes (Hospitalization)
  Sender: FDA-Public Use
  Company Number: KV200800704

PATIENT
  Age: 56 Year
  Sex: Female
  Weight: 72.6 kg

DRUGS (5)
  1. ISOSORBIDE MONONITRATE (ISOSORBIDE MONONITRATE) SLOW RELEASE TABLET, 6 [Suspect]
     Indication: CARDIAC DISORDER
     Dosage: 60 MG, 1/2 TAB, QD, ORAL
     Route: 048
     Dates: start: 20050101, end: 20081101
  2. LORAZEPAM [Concomitant]
  3. ASPIRIN [Concomitant]
  4. METOPROLOL TARTRATE [Concomitant]
  5. NOVOLOG (INSULIN ASPARAT) [Concomitant]

REACTIONS (5)
  - CHEST DISCOMFORT [None]
  - DIZZINESS [None]
  - HYPOTENSION [None]
  - LOSS OF CONSCIOUSNESS [None]
  - PRODUCT QUALITY ISSUE [None]
